FAERS Safety Report 8786196 (Version 1)
Quarter: 2012Q4

REPORT INFORMATION
  Report Type: 
  Country: US (occurrence: US)
  Receive Date: 20120914
  Receipt Date: 20120914
  Transmission Date: 20130627
  Serious: No
  Sender: FDA-Public Use
  Company Number: US-ASTRAZENECA-2012SE61260

PATIENT
  Sex: Male

DRUGS (3)
  1. SEROQUEL [Suspect]
     Indication: BIPOLAR DISORDER
     Dosage: HIGHEST POSSIBLE DOSE
     Route: 048
  2. SEROQUEL [Suspect]
     Indication: SLEEP DISORDER
     Dosage: HIGHEST POSSIBLE DOSE
     Route: 048
  3. TEMAZEPAM [Concomitant]

REACTIONS (3)
  - Hallucination, auditory [Unknown]
  - Abnormal behaviour [Unknown]
  - Off label use [Unknown]
